FAERS Safety Report 9831912 (Version 3)
Quarter: 2014Q1

REPORT INFORMATION
  Report Type: Spontaneous
  Country: US (occurrence: US)
  Receive Date: 20140121
  Receipt Date: 20140312
  Transmission Date: 20141002
  Serious: No
  Sender: FDA-Public Use
  Company Number: US-PFIZER INC-2014015265

PATIENT
  Sex: 0

DRUGS (1)
  1. DEPO-TESTOSTERONE [Suspect]
     Dosage: 200 MG/ML, UNK

REACTIONS (2)
  - Product deposit [Unknown]
  - Drug ineffective [Unknown]
